FAERS Safety Report 8772687 (Version 2)
Quarter: 2012Q4

REPORT INFORMATION
  Report Type: 
  Country: US (occurrence: US)
  Receive Date: 20120905
  Receipt Date: 20120912
  Transmission Date: 20130627
  Serious: Yes (Hospitalization)
  Sender: FDA-Public Use
  Company Number: US-JNJFOC-20120813834

PATIENT
  Age: 55 Year
  Sex: Female
  Weight: 58.8 kg

DRUGS (14)
  1. LAMOTRIGINE [Concomitant]
     Indication: PRODUCT USED FOR UNKNOWN INDICATION
     Route: 065
  2. METOPROLOL [Concomitant]
     Indication: PRODUCT USED FOR UNKNOWN INDICATION
     Route: 065
  3. XANAX [Concomitant]
     Indication: PRODUCT USED FOR UNKNOWN INDICATION
     Route: 065
  4. MICARDIS [Concomitant]
     Indication: PRODUCT USED FOR UNKNOWN INDICATION
     Route: 065
  5. OXYCODONE [Concomitant]
     Indication: PRODUCT USED FOR UNKNOWN INDICATION
     Route: 065
  6. KYTRIL [Concomitant]
     Indication: PRODUCT USED FOR UNKNOWN INDICATION
     Route: 065
  7. DOCUSATE SODIUM [Concomitant]
     Indication: PRODUCT USED FOR UNKNOWN INDICATION
     Route: 065
  8. SENNA [Concomitant]
     Indication: PRODUCT USED FOR UNKNOWN INDICATION
     Route: 065
  9. DOXORUBICIN [Suspect]
     Indication: MALIGNANT HAEMANGIOPERICYTOMA METASTATIC
     Dosage: total of 5 infusions received
     Route: 042
     Dates: end: 20120731
  10. DOXORUBICIN [Suspect]
     Indication: MALIGNANT HAEMANGIOPERICYTOMA METASTATIC
     Dosage: cycle 1 started on 24-APR-2012
     Route: 042
     Dates: start: 20120424
  11. DEXRAZOXANE [Suspect]
     Indication: HAEMANGIOPERICYTOMA
     Dosage: total infusion: 1
     Route: 042
     Dates: start: 20120731, end: 20120731
  12. ALL OTHER THERAPEUTICS [Suspect]
     Indication: HAEMANGIOPERICYTOMA
     Dosage: total infusions received till date was 11
     Route: 042
     Dates: end: 20120807
  13. ALL OTHER THERAPEUTICS [Suspect]
     Indication: HAEMANGIOPERICYTOMA
     Dosage: cycle 1
     Route: 042
     Dates: start: 20120424
  14. DULOXETINE [Concomitant]
     Indication: PRODUCT USED FOR UNKNOWN INDICATION
     Route: 065

REACTIONS (11)
  - Dyspepsia [Unknown]
  - Mucosal inflammation [Unknown]
  - Febrile neutropenia [Recovering/Resolving]
  - Anxiety [Unknown]
  - Hypertension [Unknown]
  - Vomiting projectile [Unknown]
  - Oropharyngeal pain [Unknown]
  - Dysphagia [Unknown]
  - Productive cough [Unknown]
  - Nausea [Unknown]
  - Pancytopenia [Unknown]
